FAERS Safety Report 4940848-8 (Version None)
Quarter: 2006Q1

REPORT INFORMATION
  Report Type: 
  Country: None (occurrence: None)
  Receive Date: 20060307
  Receipt Date: 20060221
  Transmission Date: 20060701
  Serious: Yes (Life-Threatening, Hospitalization, Disabling)
  Sender: FDA-Public Use
  Company Number: SUS1-2006-00236

PATIENT
  Age: 34 Year
  Sex: Male

DRUGS (1)
  1. ADDERALL XR 10 [Suspect]

REACTIONS (1)
  - CEREBROVASCULAR ACCIDENT [None]
